FAERS Safety Report 10250084 (Version 1)
Quarter: 2014Q2

REPORT INFORMATION
  Report Type: Spontaneous
  Country: US (occurrence: US)
  Receive Date: 20140620
  Receipt Date: 20140620
  Transmission Date: 20141212
  Serious: Yes (Hospitalization)
  Sender: FDA-Public Use
  Company Number: US-BRISTOL-MYERS SQUIBB COMPANY-20644761

PATIENT
  Age: 78 Year
  Sex: Female
  Weight: 81.63 kg

DRUGS (13)
  1. ELIQUIS [Suspect]
     Dates: start: 201312, end: 201403
  2. BABY ASPIRIN [Suspect]
  3. CLOPIDOGREL BISULFATE [Suspect]
  4. COREG [Concomitant]
  5. LISINOPRIL [Concomitant]
  6. POTASSIUM CHLORIDE [Concomitant]
  7. LASIX [Concomitant]
  8. LEVOXYL [Concomitant]
  9. SIMVASTATIN [Concomitant]
  10. ASPIRIN [Concomitant]
  11. CENTRUM SILVER [Concomitant]
  12. VITAMIN C [Concomitant]
  13. CALTRATE + D [Concomitant]
     Dosage: 1DF= 600UNITS NOS

REACTIONS (1)
  - Gastrointestinal haemorrhage [Recovered/Resolved]
